FAERS Safety Report 6562694-4 (Version None)
Quarter: 2010Q1

REPORT INFORMATION
  Report Type: 
  Country: None (occurrence: None)
  Receive Date: 20100130
  Receipt Date: 20091113
  Transmission Date: 20100710
  Serious: No
  Sender: FDA-Public Use
  Company Number: US-ABBOTT-09P-163-0608927-00

PATIENT
  Sex: Male
  Weight: 129.39 kg

DRUGS (2)
  1. HUMIRA [Suspect]
     Indication: ANKYLOSING SPONDYLITIS
     Dates: start: 20090919
  2. ATIVAN [Concomitant]
     Indication: ANXIETY

REACTIONS (3)
  - INFLUENZA [None]
  - RESPIRATORY TRACT CONGESTION [None]
  - RHINORRHOEA [None]
